FAERS Safety Report 21258254 (Version 2)
Quarter: 2022Q3

REPORT INFORMATION
  Report Type: Spontaneous
  Country: CH (occurrence: CH)
  Receive Date: 20220826
  Receipt Date: 20220829
  Transmission Date: 20221026
  Serious: Yes (Hospitalization, Other)
  Sender: FDA-Public Use
  Company Number: None

PATIENT
  Age: 16 Year
  Sex: Female

DRUGS (5)
  1. LYRICA [Suspect]
     Active Substance: PREGABALIN
     Indication: Analgesic therapy
     Dosage: 200 MILLIGRAM, BID
     Route: 048
     Dates: start: 202107, end: 20210803
  2. LYRICA [Suspect]
     Active Substance: PREGABALIN
     Indication: Pain
  3. PANTOZOL [Suspect]
     Active Substance: PANTOPRAZOLE SODIUM
     Indication: Gastrooesophageal reflux disease
     Dosage: 20 MILLIGRAM
     Route: 048
     Dates: end: 20210803
  4. ARCOXIA [Suspect]
     Active Substance: ETORICOXIB
     Indication: Analgesic therapy
     Dosage: 60 MILLIGRAM, QD
     Route: 048
     Dates: start: 20210722, end: 20210803
  5. SURMONTIL [Suspect]
     Active Substance: TRIMIPRAMINE MALEATE
     Indication: Analgesic therapy
     Dosage: 25 MILLIGRAM, QD
     Route: 048
     Dates: end: 20210803

REACTIONS (15)
  - Pancytopenia [Recovered/Resolved]
  - Neutropenia [Recovered/Resolved]
  - Atypical pneumonia [Unknown]
  - Pneumonia streptococcal [Unknown]
  - Acute respiratory distress syndrome [Recovered/Resolved]
  - Beta haemolytic streptococcal infection [Unknown]
  - Streptococcal sepsis [Unknown]
  - Sepsis [Unknown]
  - Bronchiolitis [Unknown]
  - Pleural effusion [Unknown]
  - Pneumothorax [Unknown]
  - Pain [Unknown]
  - Red blood cell count decreased [Unknown]
  - Weight decreased [Unknown]
  - Off label use [Unknown]

NARRATIVE: CASE EVENT DATE: 20210701
